FAERS Safety Report 10308367 (Version 1)
Quarter: 2014Q3

REPORT INFORMATION
  Report Type: Spontaneous
  Country: JP (occurrence: JP)
  Receive Date: 20140716
  Receipt Date: 20140716
  Transmission Date: 20150326
  Serious: Yes (Other)
  Sender: FDA-Public Use
  Company Number: JP-PFIZER INC-2014194299

PATIENT
  Age: 8 Decade
  Sex: Male

DRUGS (4)
  1. URINORM [Suspect]
     Active Substance: BENZBROMARONE
     Dosage: UNK
     Route: 065
  2. LIPITOR [Suspect]
     Active Substance: ATORVASTATIN CALCIUM
     Dosage: UNK
     Route: 065
  3. KALLIDINOGENASE [Suspect]
     Active Substance: KALLIDINOGENASE
     Dosage: UNK
     Route: 065
  4. LIPITOR [Suspect]
     Active Substance: ATORVASTATIN CALCIUM
     Dosage: NO ADMINISTRATION PERFORMED
     Route: 065

REACTIONS (2)
  - Liver disorder [Unknown]
  - Intercepted drug prescribing error [Unknown]

NARRATIVE: CASE EVENT DATE: 201308
